FAERS Safety Report 17375786 (Version 1)
Quarter: 2020Q1

REPORT INFORMATION
  Report Type: Spontaneous
  Country: CH (occurrence: CH)
  Receive Date: 20200206
  Receipt Date: 20200206
  Transmission Date: 20200409
  Serious: Yes (Death, Life-Threatening, Hospitalization, Other)
  Sender: FDA-Public Use
  Company Number: CH-TEVA-2020-CH-1180092

PATIENT
  Age: 22 Year
  Sex: Female
  Weight: 44 kg

DRUGS (10)
  1. PARACETAMOL [Suspect]
     Active Substance: ACETAMINOPHEN
     Dosage: LAST DOSE; IN TOTAL
     Route: 048
     Dates: start: 20200106, end: 20200106
  2. MOTILIUM [Suspect]
     Active Substance: DOMPERIDONE
     Dosage: AS NECESSARY
     Route: 048
     Dates: start: 20200103, end: 20200106
  3. PARACETAMOL [Suspect]
     Active Substance: ACETAMINOPHEN
     Route: 048
     Dates: start: 20200103, end: 20200106
  4. MOTILIUM [Suspect]
     Active Substance: DOMPERIDONE
     Route: 048
     Dates: start: 20200106, end: 20200106
  5. NOVALGIN [Concomitant]
     Dosage: AS NECESSARY
     Route: 048
     Dates: start: 20200103, end: 20200106
  6. TAMIFLU [Suspect]
     Active Substance: OSELTAMIVIR PHOSPHATE
     Dosage: IN TOTAL
     Route: 048
     Dates: start: 20200106
  7. IBUPROFEN. [Suspect]
     Active Substance: IBUPROFEN
     Dosage: AS NECESSARY
     Route: 048
     Dates: start: 20200103, end: 20200106
  8. YAZ [Concomitant]
     Active Substance: DROSPIRENONE\ETHINYL ESTRADIOL
     Route: 048
  9. IBUPROFEN. [Suspect]
     Active Substance: IBUPROFEN
     Dosage: LAST DOSE; IN TOTAL
     Route: 048
     Dates: start: 20200103, end: 20200106
  10. DAYQUIL COLD AND FLU [Suspect]
     Active Substance: ACETAMINOPHEN\DEXTROMETHORPHAN HYDROBROMIDE\PHENYLEPHRINE HYDROCHLORIDE
     Route: 048

REACTIONS (1)
  - Acute hepatic failure [Fatal]

NARRATIVE: CASE EVENT DATE: 20200107
